FAERS Safety Report 20977426 (Version 1)
Quarter: 2022Q2

REPORT INFORMATION
  Report Type: Spontaneous
  Country: LB (occurrence: LB)
  Receive Date: 20220617
  Receipt Date: 20220617
  Transmission Date: 20220721
  Serious: Yes (Hospitalization, Other)
  Sender: FDA-Public Use
  Company Number: LB-SEATTLE GENETICS-2022SGN05696

PATIENT
  Age: 25 Year
  Sex: Male

DRUGS (2)
  1. ADCETRIS [Suspect]
     Active Substance: BRENTUXIMAB VEDOTIN
     Indication: Hodgkin^s disease nodular sclerosis stage IV
     Dosage: UNK
     Route: 065
     Dates: start: 2017
  2. BENDAMUSTINE [Suspect]
     Active Substance: BENDAMUSTINE
     Indication: Hodgkin^s disease nodular sclerosis stage IV
     Dosage: UNK
     Route: 065
     Dates: start: 2017, end: 201905

REACTIONS (9)
  - Pneumonia parainfluenzae viral [Unknown]
  - Pneumonia bacterial [Unknown]
  - Bronchopulmonary aspergillosis [Unknown]
  - Graft versus host disease in skin [Unknown]
  - Pulmonary fibrosis [Unknown]
  - Organising pneumonia [Unknown]
  - Idiopathic interstitial pneumonia [Unknown]
  - Pneumonitis [Unknown]
  - Off label use [Unknown]

NARRATIVE: CASE EVENT DATE: 20190501
